FAERS Safety Report 21994573 (Version 1)
Quarter: 2023Q1

REPORT INFORMATION
  Report Type: Spontaneous
  Country: GB (occurrence: GB)
  Receive Date: 20230215
  Receipt Date: 20230215
  Transmission Date: 20230417
  Serious: Yes (Other)
  Sender: FDA-Public Use
  Company Number: GB-MYLANLABS-2023M1014678

PATIENT
  Age: 70 Year
  Sex: Female

DRUGS (8)
  1. OMEPRAZOLE [Suspect]
     Active Substance: OMEPRAZOLE
     Indication: Systemic scleroderma
     Dosage: 40 MILLIGRAM, BID
     Route: 065
  2. OMEPRAZOLE [Suspect]
     Active Substance: OMEPRAZOLE
     Indication: Oesophagitis
  3. RANITIDINE [Suspect]
     Active Substance: RANITIDINE
     Indication: Systemic scleroderma
     Dosage: 150 MILLIGRAM, BID
     Route: 065
  4. RANITIDINE [Suspect]
     Active Substance: RANITIDINE
     Indication: Oesophagitis
  5. ERYTHROMYCIN [Suspect]
     Active Substance: ERYTHROMYCIN
     Indication: Systemic scleroderma
     Dosage: UNK, TABLETS/CAPSULE
     Route: 065
  6. METOCLOPRAMIDE [Suspect]
     Active Substance: METOCLOPRAMIDE
     Indication: Systemic scleroderma
     Dosage: UNK
     Route: 065
  7. ERYTHROMYCIN [Concomitant]
     Active Substance: ERYTHROMYCIN
     Indication: Systemic scleroderma
     Dosage: 250 MILLIGRAM, BID, LIQUID
     Route: 065
  8. ERYTHROMYCIN [Concomitant]
     Active Substance: ERYTHROMYCIN
     Dosage: 250 MILLIGRAM, BID, LIQUID
     Route: 065
     Dates: start: 2017

REACTIONS (1)
  - Drug ineffective [Unknown]
